FAERS Safety Report 7321306-2 (Version None)
Quarter: 2011Q1

REPORT INFORMATION
  Report Type: 
  Country: None (occurrence: None)
  Receive Date: 20110228
  Receipt Date: 20100212
  Transmission Date: 20110831
  Serious: Yes (Other)
  Sender: FDA-Public Use
  Company Number: US-PFIZER INC-2010022168

PATIENT
  Sex: Female
  Weight: 63.492 kg

DRUGS (3)
  1. WELLBUTRIN [Concomitant]
  2. GEODON [Suspect]
     Dosage: 80 MG, 2X/DAY
     Dates: start: 20060101
  3. ATIVAN [Concomitant]

REACTIONS (1)
  - PARKINSONISM [None]
